FAERS Safety Report 18918366 (Version 1)
Quarter: 2021Q1

REPORT INFORMATION
  Report Type: Report from Study
  Country: US (occurrence: US)
  Receive Date: 20210219
  Receipt Date: 20210219
  Transmission Date: 20210420
  Serious: Yes (Other)
  Sender: FDA-Public Use
  Company Number: US-SEATTLE GENETICS-2020SGN03682

PATIENT
  Sex: Female

DRUGS (2)
  1. TUCATINIB [Suspect]
     Active Substance: TUCATINIB
     Indication: PRODUCT USED FOR UNKNOWN INDICATION
     Dosage: 50 MG, UNK
     Route: 048
  2. XELODA [Concomitant]
     Active Substance: CAPECITABINE

REACTIONS (6)
  - Nausea [Unknown]
  - Intracranial tumour haemorrhage [Unknown]
  - Confusional state [Unknown]
  - Fatigue [Unknown]
  - Burning sensation [Unknown]
  - Pain in extremity [Unknown]
